FAERS Safety Report 17000234 (Version 2)
Quarter: 2019Q4

REPORT INFORMATION
  Report Type: Spontaneous
  Country: US (occurrence: US)
  Receive Date: 20191106
  Receipt Date: 20191203
  Transmission Date: 20200122
  Serious: Yes (Hospitalization, Other)
  Sender: FDA-Public Use
  Company Number: US-009507513-1712USA008774

PATIENT
  Sex: Male
  Weight: 65.7 kg

DRUGS (6)
  1. STERILE DILUENT (WATER) [Suspect]
     Active Substance: WATER
     Indication: ROUTINE HEALTH MAINTENANCE
     Dosage: RIGHT UPPER ARM
     Route: 058
     Dates: start: 20111230, end: 20111230
  2. STERILE DILUENT (WATER) [Suspect]
     Active Substance: WATER
     Indication: PROPHYLAXIS
  3. IBUPROFEN. [Concomitant]
     Active Substance: IBUPROFEN
     Dosage: 1 TABLET EVERY 6 HOURS AS NEEDED
     Dates: start: 20130111
  4. ZOSTAVAX [Suspect]
     Active Substance: VARICELLA-ZOSTER VIRUS STRAIN OKA/MERCK LIVE ANTIGEN
     Indication: PROPHYLAXIS
     Dosage: .65 MILLILITER
     Route: 058
     Dates: start: 20111230, end: 20111230
  5. ZOSTAVAX [Suspect]
     Active Substance: VARICELLA-ZOSTER VIRUS STRAIN OKA/MERCK LIVE ANTIGEN
     Indication: ROUTINE HEALTH MAINTENANCE
  6. ANTIPYRINE (+) BENZOCAINE [Concomitant]
     Indication: EXCESSIVE CERUMEN PRODUCTION
     Dosage: 2-4 DROPS INTO AFFECTED EAR CANALS 3 X DAILY FOR 2-3 DAYS, PRN
     Route: 001
     Dates: start: 20141230

REACTIONS (9)
  - Diverticulum [Recovering/Resolving]
  - Herpes zoster [Recovering/Resolving]
  - Post herpetic neuralgia [Recovering/Resolving]
  - Chest pain [Unknown]
  - Tenderness [Unknown]
  - Immune system disorder [Not Recovered/Not Resolved]
  - Vaccination failure [Unknown]
  - Induration [Unknown]
  - Diverticulitis [Recovering/Resolving]

NARRATIVE: CASE EVENT DATE: 20161211
